FAERS Safety Report 11278105 (Version 2)
Quarter: 2015Q3

REPORT INFORMATION
  Report Type: Spontaneous
  Country: TR (occurrence: TR)
  Receive Date: 20150717
  Receipt Date: 20150723
  Transmission Date: 20151125
  Serious: Yes (Hospitalization, Other)
  Sender: FDA-Public Use
  Company Number: TR-AMGEN-TURSP2015070334

PATIENT
  Age: 81 Year
  Sex: Female
  Weight: 100 kg

DRUGS (2)
  1. ENBREL [Suspect]
     Active Substance: ETANERCEPT
     Indication: RHEUMATOID ARTHRITIS
     Dosage: 50 MG, WEEKLY
     Route: 058
     Dates: start: 201406
  2. ENBREL [Suspect]
     Active Substance: ETANERCEPT
     Dosage: 50 MG, IN EVERY 15 DAYS
     Route: 058

REACTIONS (2)
  - Myocardial infarction [Unknown]
  - Eye disorder [Unknown]

NARRATIVE: CASE EVENT DATE: 201410
